FAERS Safety Report 17722187 (Version 2)
Quarter: 2020Q2

REPORT INFORMATION
  Report Type: Spontaneous
  Country: FR (occurrence: FR)
  Receive Date: 20200429
  Receipt Date: 20200507
  Transmission Date: 20200714
  Serious: Yes (Other)
  Sender: FDA-Public Use
  Company Number: FR-US-PROVELL PHARMACEUTICALS LLC-9160072

PATIENT
  Age: 47 Year
  Sex: Female

DRUGS (1)
  1. LEVOTHYROX [Suspect]
     Active Substance: LEVOTHYROXINE
     Indication: PRODUCT USED FOR UNKNOWN INDICATION
     Dates: start: 20200424

REACTIONS (10)
  - Gait disturbance [Unknown]
  - Dry throat [Not Recovered/Not Resolved]
  - Visual impairment [Unknown]
  - Heart rate increased [Unknown]
  - Palpitations [Unknown]
  - Somnolence [Unknown]
  - Vertigo [Unknown]
  - Choking [Unknown]
  - Dizziness [Unknown]
  - Impaired driving ability [Unknown]

NARRATIVE: CASE EVENT DATE: 202004
